FAERS Safety Report 8797945 (Version 3)
Quarter: 2012Q4

REPORT INFORMATION
  Report Type: 
  Country: US (occurrence: US)
  Receive Date: 20120919
  Receipt Date: 20121025
  Transmission Date: 20130627
  Serious: Yes (Other)
  Sender: FDA-Public Use
  Company Number: US-US-EMD SERONO, INC.-7161864

PATIENT
  Age: 48 Year
  Sex: Female
  Weight: 64 kg

DRUGS (6)
  1. EGRIFTA [Suspect]
     Indication: LIPODYSTROPHY ACQUIRED
     Dates: start: 20120106, end: 20120813
  2. EGRIFTA [Suspect]
  3. ATRIPLA [Concomitant]
     Indication: PRODUCT USED FOR UNKNOWN INDICATION
     Dosage: Two puffs every 24 hours (not used regularly)
     Dates: start: 1990
  4. CELEXA [Concomitant]
     Indication: DEPRESSION
     Dates: start: 2008
  5. DEXILANT [Concomitant]
     Indication: GASTROOESOPHAGEAL REFLUX DISEASE
     Dates: start: 2010
  6. SYMBICORT [Concomitant]
     Indication: BRONCHIAL HYPERREACTIVITY

REACTIONS (6)
  - Retinopathy [Recovering/Resolving]
  - Skin turgor decreased [Unknown]
  - Type IV hypersensitivity reaction [Recovered/Resolved]
  - Arthralgia [Unknown]
  - Myalgia [Unknown]
  - Oedema peripheral [Recovered/Resolved]
